FAERS Safety Report 17329892 (Version 4)
Quarter: 2020Q3

REPORT INFORMATION
  Report Type: Spontaneous
  Country: US (occurrence: US)
  Receive Date: 20200128
  Receipt Date: 20200824
  Transmission Date: 20201102
  Serious: No
  Sender: FDA-Public Use
  Company Number: US-PFIZER INC-2019358109

PATIENT
  Age: 66 Year
  Sex: Female

DRUGS (2)
  1. XELJANZ XR [Suspect]
     Active Substance: TOFACITINIB CITRATE
     Indication: RHEUMATOID ARTHRITIS
     Dosage: 11 MG, 1X/DAY
     Route: 048
     Dates: start: 20190621
  2. FORTEO [Concomitant]
     Active Substance: TERIPARATIDE
     Dosage: UNK

REACTIONS (7)
  - Peripheral swelling [Recovering/Resolving]
  - Nasopharyngitis [Unknown]
  - Pain in extremity [Unknown]
  - Gait disturbance [Recovering/Resolving]
  - Depression [Unknown]
  - Sensitivity to weather change [Recovering/Resolving]
  - Infection [Unknown]
